FAERS Safety Report 6432067-3 (Version None)
Quarter: 2009Q4

REPORT INFORMATION
  Report Type: 
  Country: None (occurrence: None)
  Receive Date: 20091109
  Receipt Date: 20091021
  Transmission Date: 20100525
  Serious: No
  Sender: FDA-Public Use
  Company Number: BR-ROCHE-664660

PATIENT
  Sex: Female

DRUGS (1)
  1. TAMIFLU [Suspect]
     Indication: H1N1 INFLUENZA
     Route: 065
     Dates: start: 20091001

REACTIONS (2)
  - NO ADVERSE EVENT [None]
  - PREGNANCY [None]
